FAERS Safety Report 20564417 (Version 2)
Quarter: 2022Q3

REPORT INFORMATION
  Report Type: Spontaneous
  Country: CA (occurrence: CA)
  Receive Date: 20220308
  Receipt Date: 20220818
  Transmission Date: 20221027
  Serious: Yes (Other)
  Sender: FDA-Public Use
  Company Number: CA-CELLTRION INC.-2022CA002692

PATIENT

DRUGS (10)
  1. INFLECTRA [Suspect]
     Active Substance: INFLIXIMAB-DYYB
     Indication: Ankylosing spondylitis
     Dosage: 300 MG, EVERY 6 WEEKS
     Route: 042
     Dates: start: 20220225
  2. INFLECTRA [Suspect]
     Active Substance: INFLIXIMAB-DYYB
     Dosage: 300 MG, EVERY 6 WEEKS
     Route: 042
     Dates: start: 20220628
  3. PAROXETINE [Concomitant]
     Active Substance: PAROXETINE
     Dosage: 30 MG, 1X/DAY(1 DF)
     Route: 065
  4. QUETIAPINE [Concomitant]
     Active Substance: QUETIAPINE
     Indication: Cerebral atrophy
     Dosage: 1 DF DOSAGE INFO IS NOT AVAILABLE
     Route: 065
  5. QUETIAPINE [Concomitant]
     Active Substance: QUETIAPINE
     Indication: Memory impairment
  6. QUETIAPINE [Concomitant]
     Active Substance: QUETIAPINE
     Indication: Frontotemporal dementia
  7. RISPERIDONE [Concomitant]
     Active Substance: RISPERIDONE
     Indication: Cerebral atrophy
     Dosage: UNK
  8. RISPERIDONE [Concomitant]
     Active Substance: RISPERIDONE
     Indication: Memory impairment
  9. RISPERIDONE [Concomitant]
     Active Substance: RISPERIDONE
     Indication: Frontotemporal dementia
  10. TYLENOL EXTRA STRENGTH [Concomitant]
     Active Substance: ACETAMINOPHEN
     Dosage: 1 DF DOSAGE INFO IS NOT AVAILABLE
     Route: 065

REACTIONS (6)
  - Dementia [Unknown]
  - Off label use [Unknown]
  - Intentional product use issue [Unknown]
  - Off label use [Unknown]
  - Restlessness [Unknown]
  - Confusional state [Unknown]

NARRATIVE: CASE EVENT DATE: 20220225
